FAERS Safety Report 21172181 (Version 1)
Quarter: 2022Q3

REPORT INFORMATION
  Report Type: Other
  Country: GB (occurrence: GB)
  Receive Date: 20220804
  Receipt Date: 20220804
  Transmission Date: 20221027
  Serious: Yes (Hospitalization, Other)
  Sender: FDA-Public Use
  Company Number: GB-MHRA-MED-202207251318245700-YRTFB

PATIENT
  Age: 24 Year
  Sex: Female
  Weight: 50 kg

DRUGS (1)
  1. SERTRALINE [Suspect]
     Active Substance: SERTRALINE HYDROCHLORIDE
     Indication: Product used for unknown indication
     Dosage: 50 MG, TABLET (UNCOATED, ORAL)
     Route: 048

REACTIONS (41)
  - Monoplegia [Recovered/Resolved with Sequelae]
  - Eye pain [Recovered/Resolved]
  - Noninfective oophoritis [Recovered/Resolved]
  - Skin odour abnormal [Recovered/Resolved]
  - Yellow skin [Recovered/Resolved]
  - Muscle spasms [Recovering/Resolving]
  - Dry mouth [Recovered/Resolved]
  - Vision blurred [Recovered/Resolved]
  - Mydriasis [Recovered/Resolved]
  - Taste disorder [Recovered/Resolved]
  - Thirst decreased [Recovered/Resolved]
  - Crystal urine [Recovered/Resolved]
  - Radial nerve injury [Not Recovered/Not Resolved]
  - Muscular weakness [Not Recovered/Not Resolved]
  - Neck pain [Not Recovered/Not Resolved]
  - Neck injury [Not Recovered/Not Resolved]
  - Tic [Recovering/Resolving]
  - Suicidal ideation [Recovered/Resolved]
  - Back pain [Recovering/Resolving]
  - Pyrexia [Recovered/Resolved]
  - Nausea [Recovered/Resolved]
  - Flushing [Recovered/Resolved]
  - Radial nerve palsy [Recovered/Resolved]
  - Weight decreased [Recovered/Resolved]
  - Decreased appetite [Recovered/Resolved]
  - Dizziness [Recovered/Resolved]
  - Dysphagia [Recovered/Resolved with Sequelae]
  - Retching [Not Recovered/Not Resolved]
  - Amnesia [Recovered/Resolved]
  - Confusional state [Recovered/Resolved]
  - Irritability [Recovered/Resolved]
  - Restlessness [Recovered/Resolved]
  - Hyperhidrosis [Recovered/Resolved]
  - Sexual dysfunction [Recovered/Resolved]
  - Ocular hyperaemia [Recovered/Resolved]
  - Eye swelling [Recovered/Resolved]
  - Dysarthria [Recovered/Resolved]
  - Throat tightness [Recovered/Resolved]
  - Swollen tongue [Recovered/Resolved]
  - Colour blindness [Recovered/Resolved]
  - Ocular hypertension [Recovered/Resolved]
